FAERS Safety Report 8134486-6 (Version None)
Quarter: 2012Q1

REPORT INFORMATION
  Report Type: 
  Country: None (occurrence: None)
  Receive Date: 20120210
  Receipt Date: 20120207
  Transmission Date: 20120608
  Serious: Yes (Other)
  Sender: FDA-Public Use
  Company Number: ADR-2011-10991

PATIENT
  Sex: Female

DRUGS (3)
  1. LIORESAL [Suspect]
     Indication: SURGICAL FAILURE
     Dosage: 87.57 MCG, DAILY, INTRA
     Route: 039
  2. LIORESAL [Suspect]
     Indication: PAIN
     Dosage: 87.57 MCG, DAILY, INTRA
     Route: 039
  3. DILAUDID [Concomitant]

REACTIONS (9)
  - DEVICE LEAKAGE [None]
  - DEVICE MALFUNCTION [None]
  - CONTUSION [None]
  - MUSCLE SPASMS [None]
  - FALL [None]
  - WEIGHT INCREASED [None]
  - PAIN [None]
  - DEVICE DISLOCATION [None]
  - PSEUDOMENINGOCELE [None]
